FAERS Safety Report 24431358 (Version 1)
Quarter: 2024Q4

REPORT INFORMATION
  Report Type: Spontaneous
  Country: CN (occurrence: CN)
  Receive Date: 20241014
  Receipt Date: 20241014
  Transmission Date: 20250114
  Serious: Yes (Hospitalization)
  Sender: CHEPLAPHARM
  Company Number: CN-CHEPLA-2024012842

PATIENT
  Age: 43 Year
  Sex: Male
  Weight: 50 kg

DRUGS (1)
  1. VALGANCICLOVIR [Suspect]
     Active Substance: VALGANCICLOVIR
     Indication: Infection prophylaxis
     Dosage: APPROVAL NO. H20150330?DAILY DOSE: 450 MILLIGRAM
     Route: 048
     Dates: start: 20240715, end: 20240926

REACTIONS (3)
  - Agranulocytosis [Recovering/Resolving]
  - Condition aggravated [Recovering/Resolving]
  - Off label use [Recovered/Resolved]

NARRATIVE: CASE EVENT DATE: 20240925
